FAERS Safety Report 17352067 (Version 1)
Quarter: 2020Q1

REPORT INFORMATION
  Report Type: Spontaneous
  Country: US (occurrence: US)
  Receive Date: 20200130
  Receipt Date: 20200130
  Transmission Date: 20200409
  Serious: Yes (Other)
  Sender: FDA-Public Use
  Company Number: US-GILEAD-2020-0449045

PATIENT
  Age: 40 Year
  Sex: Female

DRUGS (1)
  1. DESCOVY [Suspect]
     Active Substance: EMTRICITABINE\TENOFOVIR ALAFENAMIDE FUMARATE
     Indication: HIV INFECTION
     Dosage: UNK
     Route: 065
     Dates: start: 201907

REACTIONS (5)
  - Muscular weakness [Unknown]
  - Hypersensitivity [Unknown]
  - Cushing^s syndrome [Unknown]
  - Blood cholesterol increased [Unknown]
  - Hair growth abnormal [Unknown]
